FAERS Safety Report 7304287-7 (Version None)
Quarter: 2011Q1

REPORT INFORMATION
  Report Type: 
  Country: None (occurrence: None)
  Receive Date: 20110221
  Receipt Date: 20110211
  Transmission Date: 20110831
  Serious: Yes (Hospitalization)
  Sender: FDA-Public Use
  Company Number: CA-ASTRAZENECA-2011SE09085

PATIENT
  Age: 67 Year
  Sex: Male

DRUGS (3)
  1. NEXIUM [Suspect]
     Route: 048
     Dates: start: 20090101
  2. AMLODIPINE [Concomitant]
     Route: 048
  3. VALSARTAN [Concomitant]
     Route: 048

REACTIONS (1)
  - EYE DISORDER [None]
